FAERS Safety Report 9914179 (Version 2)
Quarter: 2014Q1

REPORT INFORMATION
  Report Type: Spontaneous
  Country: US (occurrence: None)
  Receive Date: 20140218
  Receipt Date: 20140319
  Transmission Date: 20141002
  Serious: Yes (Other)
  Sender: FDA-Public Use
  Company Number: 2013P1021701

PATIENT
  Age: 77 Year
  Sex: Female
  Weight: 71.22 kg

DRUGS (6)
  1. DONEPEZIL HYDROCHLORIDE [Suspect]
     Indication: MEMORY IMPAIRMENT
     Route: 048
     Dates: start: 201301, end: 20140113
  2. PAXIL [Suspect]
  3. NEXIUM [Concomitant]
  4. AMLODIPINE [Concomitant]
  5. ZOLPIDEM [Concomitant]
  6. EFFEXOR [Concomitant]

REACTIONS (8)
  - Paraesthesia [None]
  - Drug ineffective [None]
  - Weight decreased [None]
  - Arthralgia [None]
  - Hyperthyroidism [None]
  - Anxiety [None]
  - Treatment failure [None]
  - Rheumatoid factor positive [None]
